FAERS Safety Report 9697481 (Version 2)
Quarter: 2013Q4

REPORT INFORMATION
  Report Type: Report from Study
  Country: US (occurrence: US)
  Receive Date: 20131120
  Receipt Date: 20131204
  Transmission Date: 20140711
  Serious: Yes (Death)
  Sender: FDA-Public Use
  Company Number: PHEH2013US024268

PATIENT
  Sex: Male

DRUGS (7)
  1. GLEEVEC [Suspect]
     Indication: CHRONIC MYELOID LEUKAEMIA
     Dosage: 400 MG, DAILY
     Route: 048
     Dates: start: 20120514
  2. ASPIRIN [Concomitant]
     Dosage: UNK UKN, UNK
  3. PROTONIX [Concomitant]
     Dosage: UNK UKN, UNK
  4. METOPROLOL [Concomitant]
     Dosage: UNK UKN, UNK
  5. ATENOLOL [Concomitant]
     Dosage: UNK UKN, UNK
  6. FINASTERIDE [Concomitant]
     Dosage: UNK UKN, UNK
  7. POTASSIUM [Concomitant]
     Dosage: UNK UKN, UNK

REACTIONS (2)
  - Prostate cancer metastatic [Fatal]
  - Second primary malignancy [Fatal]
